FAERS Safety Report 8005462-9 (Version None)
Quarter: 2011Q4

REPORT INFORMATION
  Report Type: 
  Country: None (occurrence: None)
  Receive Date: 20111223
  Receipt Date: 20111208
  Transmission Date: 20120403
  Serious: Yes (Death)
  Sender: FDA-Public Use
  Company Number: US-CELGENEUS-163-21880-11103543

PATIENT
  Sex: Male

DRUGS (6)
  1. ZOFRAN [Concomitant]
     Indication: NAUSEA
     Dosage: 8 MILLIGRAM
     Route: 048
     Dates: start: 20110801
  2. DECADRON [Concomitant]
     Dosage: 20 MILLIGRAM
     Route: 041
     Dates: start: 20110801, end: 20111001
  3. LORTAB [Concomitant]
     Indication: PAIN
     Dosage: 7.5 MILLIGRAM
     Route: 048
     Dates: start: 20110801
  4. REVLIMID [Suspect]
     Indication: MULTIPLE MYELOMA
     Dosage: 25 MILLIGRAM
     Route: 048
     Dates: start: 20110801, end: 20111001
  5. AMBIEN [Concomitant]
     Indication: SLEEP DISORDER
     Dosage: 5 MILLIGRAM
     Route: 048
     Dates: start: 20110901
  6. VELCADE [Concomitant]
     Dosage: 2.9 MILLIGRAM
     Route: 041
     Dates: start: 20110801, end: 20111001

REACTIONS (1)
  - MULTIPLE MYELOMA [None]
